FAERS Safety Report 5540619-8 (Version None)
Quarter: 2007Q4

REPORT INFORMATION
  Report Type: 
  Country: None (occurrence: None)
  Receive Date: 20071129
  Receipt Date: 20070423
  Transmission Date: 20080405
  Serious: Yes (Other)
  Sender: FDA-Public Use
  Company Number: US200704004818

PATIENT
  Sex: Male

DRUGS (5)
  1. ZYPREXA [Suspect]
  2. ZYPREXA ZYDIS [Suspect]
     Dosage: ORAL
     Route: 048
  3. DEPAKOTE [Concomitant]
  4. LAMICTAL [Concomitant]
  5. GLUCOPHAGE [Concomitant]

REACTIONS (3)
  - GLUCOSE TOLERANCE IMPAIRED [None]
  - INCREASED APPETITE [None]
  - WEIGHT INCREASED [None]
